FAERS Safety Report 6805320-9 (Version None)
Quarter: 2010Q2

REPORT INFORMATION
  Report Type: 
  Country: None (occurrence: None)
  Receive Date: 20100628
  Receipt Date: 20071018
  Transmission Date: 20101027
  Serious: No
  Sender: FDA-Public Use
  Company Number: US-PFIZER INC-2007087632

PATIENT
  Sex: Male
  Weight: 105.7 kg

DRUGS (2)
  1. SUTENT [Suspect]
     Indication: RENAL CANCER METASTATIC
     Dosage: OD (4 WEEKS ON, 2 WEEKS OFF)
     Dates: start: 20070731
  2. LORAZEPAM [Concomitant]

REACTIONS (1)
  - DRUG INEFFECTIVE [None]
